FAERS Safety Report 9200091 (Version 1)
Quarter: 2013Q1

REPORT INFORMATION
  Report Type: Spontaneous
  Country: DK (occurrence: DK)
  Receive Date: 20130329
  Receipt Date: 20130329
  Transmission Date: 20140127
  Serious: Yes (Hospitalization)
  Sender: FDA-Public Use
  Company Number: DK-MUTUAL PHARMACEUTICAL COMPANY, INC.-IBPF20130011

PATIENT
  Age: 68 None
  Sex: Female

DRUGS (2)
  1. IBUMETIN [Suspect]
     Indication: ARTHRALGIA
     Route: 048
     Dates: start: 20070720
  2. PANODIL (PARACETAMOL) [Concomitant]
     Indication: PAIN
     Route: 065

REACTIONS (5)
  - Device dislocation [Recovered/Resolved]
  - Hip arthroplasty [Recovered/Resolved]
  - Pain [Recovered/Resolved]
  - Walking disability [Unknown]
  - Fall [Unknown]
